FAERS Safety Report 5782374-2 (Version None)
Quarter: 2008Q2

REPORT INFORMATION
  Report Type: 
  Country: None (occurrence: None)
  Receive Date: 20080618
  Receipt Date: 20080616
  Transmission Date: 20081010
  Serious: Yes (Hospitalization)
  Sender: FDA-Public Use
  Company Number: GRT 2007-12880

PATIENT
  Age: 67 Year
  Sex: Female
  Weight: 72 kg

DRUGS (14)
  1. LIDOCAINE [Suspect]
     Indication: POST HERPETIC NEURALGIA
     Dosage: 2 PATCHES A DAY;
     Dates: start: 20070702, end: 20070712
  2. ACETAMINOPHEN [Concomitant]
  3. ENALAPRIL MALEATE [Concomitant]
  4. TORSEMIDE [Concomitant]
  5. JUTALEX [Concomitant]
  6. ASPIRIN [Concomitant]
  7. DELIX 5 [Concomitant]
  8. ESIDRIX 25 [Concomitant]
  9. LYRICA 75 [Concomitant]
  10. TILIDIN [Concomitant]
  11. TOREM 5 [Concomitant]
  12. GABAPENTIN [Concomitant]
  13. IBUROFEN [Concomitant]
  14. ARCOXIA [Concomitant]

REACTIONS (7)
  - APRAXIA [None]
  - ENCEPHALITIS [None]
  - MENTAL DISORDER DUE TO A GENERAL MEDICAL CONDITION [None]
  - OVERDOSE [None]
  - PSYCHOMOTOR HYPERACTIVITY [None]
  - PUPILLARY LIGHT REFLEX TESTS ABNORMAL [None]
  - SPEECH DISORDER [None]
